FAERS Safety Report 25367366 (Version 2)
Quarter: 2025Q4

REPORT INFORMATION
  Report Type: Report from Study
  Country: AR (occurrence: AR)
  Receive Date: 20250528
  Receipt Date: 20251211
  Transmission Date: 20260118
  Serious: Yes (Hospitalization)
  Sender: BIOGEN
  Company Number: AR-BIOGEN-2025BI01311986

PATIENT
  Age: 10 Year
  Sex: Male

DRUGS (1)
  1. SPINRAZA [Suspect]
     Active Substance: NUSINERSEN
     Indication: Spinal muscular atrophy
     Dosage: DOSAGE TEXT:LAST ADMINISTRATION 09DEC2024?LAST DOSE: 08JUL2025
     Dates: start: 20180901

REACTIONS (2)
  - Post procedural haemorrhage [Recovered/Resolved]
  - Post procedural complication [Unknown]

NARRATIVE: CASE EVENT DATE: 20250101
